FAERS Safety Report 4914101-2 (Version None)
Quarter: 2006Q1

REPORT INFORMATION
  Report Type: 
  Country: None (occurrence: None)
  Receive Date: 20060213
  Receipt Date: 20060125
  Transmission Date: 20060701
  Serious: Yes (Hospitalization)
  Sender: FDA-Public Use
  Company Number: 200610109BVD

PATIENT
  Age: 73 Year
  Sex: Female

DRUGS (1)
  1. SORAFENIB [Suspect]
     Indication: RENAL CELL CARCINOMA STAGE UNSPECIFIED
     Dosage: 200 MG, BID, ORAL
     Route: 048
     Dates: start: 20051031

REACTIONS (1)
  - CEREBRAL ISCHAEMIA [None]
